FAERS Safety Report 26044505 (Version 1)
Quarter: 2025Q4

REPORT INFORMATION
  Report Type: Report from Study
  Country: US (occurrence: US)
  Receive Date: 20251114
  Receipt Date: 20251114
  Transmission Date: 20260117
  Serious: No
  Sender: BIOGEN
  Company Number: US-BIOGEN-2090414

PATIENT
  Age: 27 Year
  Sex: Female

DRUGS (1)
  1. ZURZUVAE [Suspect]
     Active Substance: ZURANOLONE
     Indication: Perinatal depression
     Dosage: DAILY FOR 14 DAYS

REACTIONS (6)
  - Brain fog [Unknown]
  - Tremor [Unknown]
  - Confusional state [Unknown]
  - Dizziness [Unknown]
  - Speech disorder [Unknown]
  - Gait inability [Unknown]
